FAERS Safety Report 5149392-9 (Version None)
Quarter: 2006Q4

REPORT INFORMATION
  Report Type: 
  Country: None (occurrence: None)
  Receive Date: 20061113
  Receipt Date: 20051216
  Transmission Date: 20070319
  Serious: No
  Sender: FDA-Public Use
  Company Number: A0586108A

PATIENT
  Sex: Female

DRUGS (6)
  1. COREG [Suspect]
     Dosage: 3.125MG TWICE PER DAY
     Route: 048
     Dates: start: 20051101
  2. ZOCOR [Suspect]
     Indication: BLOOD CHOLESTEROL INCREASED
     Dosage: 40MG PER DAY
     Route: 048
     Dates: start: 20051101
  3. PLAVIX [Concomitant]
  4. DIOVAN [Concomitant]
  5. GLUCOTROL [Concomitant]
  6. MAGNESIUM OXIDE [Concomitant]

REACTIONS (1)
  - VISION BLURRED [None]
